FAERS Safety Report 11267121 (Version 2)
Quarter: 2015Q4

REPORT INFORMATION
  Report Type: Report from Study
  Country: US (occurrence: US)
  Receive Date: 20150713
  Receipt Date: 20151026
  Transmission Date: 20160304
  Serious: Yes (Death, Other)
  Sender: FDA-Public Use
  Company Number: US-CELGENE-163-21660-11071462

PATIENT

DRUGS (5)
  1. ONDANSETRON [Concomitant]
     Active Substance: ONDANSETRON
     Indication: ANTIEMETIC SUPPORTIVE CARE
     Route: 048
  2. CARBOPLATIN. [Suspect]
     Active Substance: CARBOPLATIN
     Indication: NON-SMALL CELL LUNG CANCER
     Dosage: AUC=6
     Route: 041
  3. ONDANSETRON [Concomitant]
     Active Substance: ONDANSETRON
     Route: 041
  4. ABRAXANE [Suspect]
     Active Substance: PACLITAXEL
     Indication: NON-SMALL CELL LUNG CANCER
     Route: 065
  5. ABRAXANE [Suspect]
     Active Substance: PACLITAXEL
     Route: 065

REACTIONS (24)
  - Decreased appetite [Unknown]
  - Neutropenia [Unknown]
  - Thrombocytopenia [Unknown]
  - Lymphopenia [Unknown]
  - Peripheral motor neuropathy [Unknown]
  - Fatigue [Unknown]
  - Sudden death [Fatal]
  - Infection [Unknown]
  - Peripheral sensory neuropathy [Unknown]
  - Colitis [Unknown]
  - Dyspnoea [Unknown]
  - Leukopenia [Unknown]
  - Death [Fatal]
  - Febrile neutropenia [Unknown]
  - Anaemia [Unknown]
  - Non-small cell lung cancer [Unknown]
  - Respiratory failure [Fatal]
  - Hyponatraemia [Unknown]
  - Back pain [Unknown]
  - Haematotoxicity [Unknown]
  - Dehydration [Unknown]
  - Nausea [Unknown]
  - Insomnia [Unknown]
  - Hypokalaemia [Unknown]
